FAERS Safety Report 7028302-3 (Version None)
Quarter: 2010Q4

REPORT INFORMATION
  Report Type: 
  Country: None (occurrence: None)
  Receive Date: 20101001
  Receipt Date: 20101001
  Transmission Date: 20110411
  Serious: Yes (Hospitalization)
  Sender: FDA-Public Use
  Company Number: None

PATIENT
  Age: 64 Year
  Sex: Male
  Weight: 86.9 kg

DRUGS (1)
  1. ACTIVASE [Suspect]
     Indication: VASCULAR OPERATION
     Dosage: 0.5 MG PER HOUR OTHER
     Route: 050
     Dates: start: 20100914, end: 20100916

REACTIONS (2)
  - FEMORAL NERVE PALSY [None]
  - HAEMATOMA [None]
